FAERS Safety Report 25724707 (Version 2)
Quarter: 2025Q3

REPORT INFORMATION
  Report Type: Spontaneous
  Country: US (occurrence: US)
  Receive Date: 20250826
  Receipt Date: 20250910
  Transmission Date: 20251021
  Serious: Yes (Hospitalization)
  Sender: AUROBINDO
  Company Number: US-MLMSERVICE-20250807-PI608147-00214-1

PATIENT
  Age: 77 Year
  Sex: Female

DRUGS (1)
  1. MEROPENEM [Suspect]
     Active Substance: MEROPENEM
     Indication: Clostridium difficile colitis
     Route: 065

REACTIONS (3)
  - Drug eruption [Recovered/Resolved]
  - Vitamin C deficiency [Recovered/Resolved]
  - Purpura [Recovered/Resolved]
